FAERS Safety Report 16834276 (Version 3)
Quarter: 2019Q4

REPORT INFORMATION
  Report Type: Spontaneous
  Country: US (occurrence: US)
  Receive Date: 20190920
  Receipt Date: 20191014
  Transmission Date: 20200122
  Serious: Yes (Hospitalization, Other)
  Sender: FDA-Public Use
  Company Number: US-PFIZER INC-2019403201

PATIENT
  Age: 63 Year
  Sex: Male
  Weight: 104.7 kg

DRUGS (5)
  1. LEVETIRACETAM. [Concomitant]
     Active Substance: LEVETIRACETAM
     Indication: SEIZURE
     Dosage: 1000 MG, 2X/DAY (500 MG 2 CAPS 2X A DAY)
     Dates: start: 201805
  2. PREGABALIN. [Suspect]
     Active Substance: PREGABALIN
     Indication: EPILEPSY
     Dosage: 600 MG, 2X/DAY
     Dates: start: 201908
  3. PREGABALIN. [Suspect]
     Active Substance: PREGABALIN
     Indication: SEIZURE
  4. APTIOM [Concomitant]
     Active Substance: ESLICARBAZEPINE ACETATE
     Indication: SEIZURE
     Dosage: UNK
  5. SEPTRA [Concomitant]
     Active Substance: SULFAMETHOXAZOLE\TRIMETHOPRIM
     Indication: SEIZURE
     Dosage: UNK

REACTIONS (13)
  - Asocial behaviour [Unknown]
  - Loss of consciousness [Unknown]
  - Communication disorder [Unknown]
  - Fall [Not Recovered/Not Resolved]
  - Head injury [Unknown]
  - Increased appetite [Unknown]
  - Lethargy [Not Recovered/Not Resolved]
  - Bradyphrenia [Unknown]
  - Cognitive disorder [Unknown]
  - Overdose [Unknown]
  - Balance disorder [Unknown]
  - Somnolence [Unknown]
  - Neuropathy peripheral [Not Recovered/Not Resolved]

NARRATIVE: CASE EVENT DATE: 201908
